FAERS Safety Report 8091672-1 (Version None)
Quarter: 2012Q1

REPORT INFORMATION
  Report Type: 
  Country: None (occurrence: None)
  Receive Date: 20120129
  Receipt Date: 20110917
  Transmission Date: 20120608
  Serious: No
  Sender: FDA-Public Use
  Company Number: US-ABBOTT-11P-163-0856801-00

PATIENT
  Sex: Female

DRUGS (1)
  1. HUMIRA [Suspect]
     Indication: PRODUCT USED FOR UNKNOWN INDICATION
     Dosage: 1ST SHIPPED ON 27 APR 2011
     Route: 058

REACTIONS (3)
  - NASOPHARYNGITIS [None]
  - RHINORRHOEA [None]
  - OROPHARYNGEAL PAIN [None]
